FAERS Safety Report 5911870-X (Version None)
Quarter: 2008Q4

REPORT INFORMATION
  Report Type: 
  Country: None (occurrence: None)
  Receive Date: 20081006
  Receipt Date: 20080918
  Transmission Date: 20090506
  Serious: Yes (Life-Threatening, Hospitalization, Disabling)
  Sender: FDA-Public Use
  Company Number: ADE2008-0318

PATIENT
  Age: 31 Year
  Sex: Female
  Weight: 80 kg

DRUGS (3)
  1. CITALOPRAM HYDROBROMIDE [Suspect]
     Indication: DEPRESSION
     Dosage: 20MG - PO
     Route: 048
     Dates: end: 20080826
  2. CITALOPRAM HYDROBROMIDE [Suspect]
     Indication: DEPRESSION
     Dosage: 40MG - PO
     Route: 048
  3. DIANETTE [Suspect]
     Dosage: QD - PO
     Route: 048
     Dates: end: 20080826

REACTIONS (1)
  - HAEMORRHAGE INTRACRANIAL [None]
